FAERS Safety Report 9721426 (Version 1)
Quarter: 2013Q4

REPORT INFORMATION
  Report Type: Spontaneous
  Country: US (occurrence: US)
  Receive Date: 20131129
  Receipt Date: 20131129
  Transmission Date: 20140711
  Serious: No
  Sender: FDA-Public Use
  Company Number: US-009507513-1311USA008036

PATIENT
  Age: 53 Year
  Sex: Male
  Weight: 88.44 kg

DRUGS (7)
  1. ASMANEX TWISTHALER [Suspect]
     Indication: OCCUPATIONAL ASTHMA
     Dosage: 2 DF, BID
     Route: 055
     Dates: start: 201307
  2. XOPENEX HFA [Suspect]
     Indication: OCCUPATIONAL ASTHMA
     Dosage: 90 MICROGRAM, HS
     Route: 055
     Dates: start: 201307, end: 201307
  3. XOPENEX HFA [Suspect]
     Dosage: 1 PUFF AT BEDTIME, BUT WAS NOT USING IT EVERY NIGHT
     Route: 055
     Dates: start: 201307, end: 201309
  4. XOPENEX HFA [Suspect]
     Dosage: 2 PUFF AT BEDTIME
     Route: 055
     Dates: start: 201309, end: 20131021
  5. XOPENEX HFA [Suspect]
     Dosage: 2 PUFF AT BEDTIME
     Route: 055
     Dates: start: 20131021, end: 201310
  6. CLARITIN [Concomitant]
     Route: 048
  7. ALBUTEROL [Concomitant]
     Dosage: UNK
     Dates: start: 201307

REACTIONS (6)
  - Palpitations [Recovered/Resolved]
  - Feeling jittery [Recovered/Resolved]
  - Eye swelling [Recovered/Resolved]
  - Eye swelling [Recovered/Resolved]
  - Palpitations [Recovered/Resolved]
  - Stomatitis [Recovered/Resolved]
